FAERS Safety Report 12321885 (Version 1)
Quarter: 2016Q2

REPORT INFORMATION
  Report Type: Spontaneous
  Country: US (occurrence: US)
  Receive Date: 20160502
  Receipt Date: 20160502
  Transmission Date: 20160815
  Serious: No
  Sender: FDA-Public Use
  Company Number: US-GLAXOSMITHKLINE-US2016052264

PATIENT
  Age: 4 Year
  Sex: Male

DRUGS (5)
  1. FLOVENT DISKUS [Suspect]
     Active Substance: FLUTICASONE PROPIONATE
     Indication: ASTHMA
  2. XOPENEX [Concomitant]
     Active Substance: LEVALBUTEROL HYDROCHLORIDE
  3. ADVAIR DISKUS [Suspect]
     Active Substance: FLUTICASONE PROPIONATE\SALMETEROL XINAFOATE
     Indication: ASTHMA EXERCISE INDUCED
     Dosage: UNK
     Route: 055
     Dates: start: 201601
  4. ADVAIR DISKUS [Suspect]
     Active Substance: FLUTICASONE PROPIONATE\SALMETEROL XINAFOATE
     Indication: ASTHMA
     Dosage: UNK
     Dates: start: 2016, end: 201602
  5. FLOVENT DISKUS [Suspect]
     Active Substance: FLUTICASONE PROPIONATE
     Indication: ASTHMA EXERCISE INDUCED
     Dosage: UNK
     Route: 055
     Dates: start: 201602, end: 201602

REACTIONS (2)
  - Asthma [Recovering/Resolving]
  - Abnormal behaviour [Unknown]

NARRATIVE: CASE EVENT DATE: 201602
